FAERS Safety Report 15003897 (Version 2)
Quarter: 2018Q2

REPORT INFORMATION
  Report Type: Report from Study
  Country: SE (occurrence: SE)
  Receive Date: 20180613
  Receipt Date: 20180620
  Transmission Date: 20180711
  Serious: Yes (Life-Threatening)
  Sender: FDA-Public Use
  Company Number: SE-ROCHE-2139147

PATIENT

DRUGS (1)
  1. RITUXIMAB. [Suspect]
     Active Substance: RITUXIMAB
     Indication: MULTIPLE SCLEROSIS
     Dosage: UNK
     Route: 041

REACTIONS (3)
  - Intentional product use issue [Unknown]
  - Intestinal perforation [Unknown]
  - Off label use [Unknown]
